FAERS Safety Report 5508865-7 (Version None)
Quarter: 2007Q4

REPORT INFORMATION
  Report Type: 
  Country: None (occurrence: None)
  Receive Date: 20071107
  Receipt Date: 20071028
  Transmission Date: 20080405
  Serious: Yes (Life-Threatening, Hospitalization)
  Sender: FDA-Public Use
  Company Number: US-JNJFOC-20071100189

PATIENT
  Sex: Female
  Weight: 60.7 kg

DRUGS (8)
  1. TRAMADOL HYDROCHLORIDE ER [Suspect]
     Indication: OSTEOARTHRITIS
     Route: 048
  2. MELOXICAM [Suspect]
     Indication: OSTEOARTHRITIS
     Route: 048
  3. ASPIRIN [Concomitant]
     Route: 065
  4. ENALAPRIL HCT [Concomitant]
     Route: 065
  5. LEVOXYL [Concomitant]
     Route: 065
  6. METOPROLOL TARTRATE [Concomitant]
     Route: 065
  7. COLACE [Concomitant]
     Indication: CONSTIPATION
     Route: 065
  8. SENOKOT [Concomitant]
     Indication: CONSTIPATION
     Route: 065

REACTIONS (3)
  - ANGIOEDEMA [None]
  - DYSPNOEA [None]
  - OROPHARYNGEAL SWELLING [None]
